FAERS Safety Report 20756373 (Version 1)
Quarter: 2022Q2

REPORT INFORMATION
  Report Type: Spontaneous
  Country: SG (occurrence: SG)
  Receive Date: 20220427
  Receipt Date: 20220427
  Transmission Date: 20220721
  Serious: Yes (Hospitalization)
  Sender: FDA-Public Use
  Company Number: SG-MYLANLABS-2022M1030536

PATIENT
  Sex: Male

DRUGS (16)
  1. VANCOMYCIN [Suspect]
     Active Substance: VANCOMYCIN
     Indication: Endophthalmitis
     Dosage: UNK; 1MG/0.1ML
  2. TRUSOPT [Suspect]
     Active Substance: DORZOLAMIDE HYDROCHLORIDE
     Indication: Open angle glaucoma
     Dosage: UNK
     Route: 061
  3. COMBIGAN [Suspect]
     Active Substance: BRIMONIDINE TARTRATE\TIMOLOL MALEATE
     Indication: Open angle glaucoma
     Dosage: UNK
     Route: 061
  4. TRAVATAN [Suspect]
     Active Substance: TRAVOPROST
     Indication: Open angle glaucoma
     Dosage: UNK
     Route: 061
  5. CEFTAZIDIME [Suspect]
     Active Substance: CEFTAZIDIME
     Indication: Endophthalmitis
     Dosage: UNK; 2.25MG/0.1ML
  6. CIPROFLOXACIN [Suspect]
     Active Substance: CIPROFLOXACIN
     Indication: Endophthalmitis
     Dosage: 500 MILLIGRAM
     Route: 048
  7. CEFAZOLIN [Suspect]
     Active Substance: CEFAZOLIN
     Indication: Endophthalmitis
     Dosage: 50MG/ML; TOPICAL FORTIFIED
     Route: 061
  8. GENTAMICIN [Suspect]
     Active Substance: GENTAMICIN
     Indication: Endophthalmitis
     Dosage: UNK UNK, QH, 14MG/ML AT HOURLY INTERVALS
     Route: 061
  9. CHLORAMPHENICOL [Suspect]
     Active Substance: CHLORAMPHENICOL
     Indication: Endophthalmitis
     Dosage: UNK
     Route: 061
  10. PREDNISOLONE [Concomitant]
     Active Substance: PREDNISOLONE
     Indication: Hypotony maculopathy
     Dosage: 15 MILLIGRAM, QD
     Route: 048
  11. POVIDONE-IODINE [Concomitant]
     Active Substance: POVIDONE-IODINE
     Indication: Drug therapy
     Dosage: UNK
     Route: 065
  12. SALINE [Concomitant]
     Active Substance: SODIUM CHLORIDE
     Indication: Product used for unknown indication
     Dosage: UNK
     Route: 065
  13. DIAMOX SEQUELS [Concomitant]
     Active Substance: ACETAZOLAMIDE
     Indication: Open angle glaucoma
     Dosage: UNK
     Route: 042
  14. AZOPT [Concomitant]
     Active Substance: BRINZOLAMIDE
     Indication: Open angle glaucoma
     Dosage: UNK
     Route: 061
  15. TRAVOPROST [Concomitant]
     Active Substance: TRAVOPROST
     Indication: Open angle glaucoma
     Dosage: UNK
     Route: 061
  16. BRIMONIDINE TARTRATE\TIMOLOL MALEATE [Concomitant]
     Active Substance: BRIMONIDINE TARTRATE\TIMOLOL MALEATE
     Indication: Open angle glaucoma
     Dosage: UNK
     Route: 061

REACTIONS (2)
  - Drug ineffective [Unknown]
  - Off label use [Unknown]
